FAERS Safety Report 6504009-3 (Version None)
Quarter: 2009Q4

REPORT INFORMATION
  Report Type: 
  Country: None (occurrence: None)
  Receive Date: 20091217
  Receipt Date: 20091207
  Transmission Date: 20100525
  Serious: Yes (Life-Threatening, Other)
  Sender: FDA-Public Use
  Company Number: US-PFIZER INC-2009287912

PATIENT
  Sex: Female
  Weight: 80.272 kg

DRUGS (2)
  1. CHANTIX [Suspect]
     Indication: TOBACCO USER
     Dosage: 1 MG, 2X/DAY
     Route: 048
     Dates: start: 20091013
  2. COMBIVENT [Concomitant]

REACTIONS (5)
  - DYSGEUSIA [None]
  - GINGIVAL BLEEDING [None]
  - ORAL PAIN [None]
  - STOMATITIS [None]
  - ULCER [None]
